FAERS Safety Report 7545770-9 (Version None)
Quarter: 2011Q2

REPORT INFORMATION
  Report Type: 
  Country: None (occurrence: None)
  Receive Date: 20110614
  Receipt Date: 20110531
  Transmission Date: 20111010
  Serious: Yes (Hospitalization)
  Sender: FDA-Public Use
  Company Number: US-ELI_LILLY_AND_COMPANY-US201106000689

PATIENT
  Age: 85 Year
  Sex: Female

DRUGS (2)
  1. FORTEO [Suspect]
     Indication: OSTEOPOROSIS
     Dosage: 20 UG, QD
  2. ANTIHYPERTENSIVES [Concomitant]

REACTIONS (6)
  - DEHYDRATION [None]
  - FALL [None]
  - CONFUSIONAL STATE [None]
  - PAIN IN EXTREMITY [None]
  - VOMITING [None]
  - MALAISE [None]
